FAERS Safety Report 9171424 (Version 1)
Quarter: 2013Q1

REPORT INFORMATION
  Report Type: Spontaneous
  Country: GB (occurrence: GB)
  Receive Date: 20130319
  Receipt Date: 20130319
  Transmission Date: 20140127
  Serious: Yes (Other)
  Sender: FDA-Public Use
  Company Number: GB-ELI_LILLY_AND_COMPANY-GB201303004638

PATIENT
  Sex: Male

DRUGS (1)
  1. EFIENT [Suspect]
     Dosage: 10 MG, QD

REACTIONS (1)
  - Dysphagia [Unknown]
